FAERS Safety Report 21558539 (Version 1)
Quarter: 2022Q4

REPORT INFORMATION
  Report Type: Spontaneous
  Country: GB (occurrence: GB)
  Receive Date: 20221107
  Receipt Date: 20221107
  Transmission Date: 20230113
  Serious: Yes (Other)
  Sender: FDA-Public Use
  Company Number: GB-AUROBINDO-AUR-APL-2022-045931

PATIENT
  Age: 3 Year
  Sex: Male
  Weight: 16 kg

DRUGS (1)
  1. AMOXICILLIN [Suspect]
     Active Substance: AMOXICILLIN
     Indication: Tonsillitis bacterial
     Dosage: 5 MILLILITER, 3 TIMES A DAY
     Route: 065
     Dates: start: 20221020, end: 20221024

REACTIONS (4)
  - Mood swings [Recovering/Resolving]
  - Sleep terror [Unknown]
  - Psychomotor hyperactivity [Recovering/Resolving]
  - Emotional distress [Recovering/Resolving]

NARRATIVE: CASE EVENT DATE: 20221020
